FAERS Safety Report 21639508 (Version 12)
Quarter: 2024Q2

REPORT INFORMATION
  Report Type: Report from Study
  Country: US (occurrence: US)
  Receive Date: 20221124
  Receipt Date: 20240402
  Transmission Date: 20240716
  Serious: Yes (Hospitalization, Other)
  Sender: FDA-Public Use
  Company Number: US-TAKEDA-2022TUS043566

PATIENT
  Sex: Male
  Weight: 8 kg

DRUGS (17)
  1. VELAGLUCERASE ALFA [Suspect]
     Active Substance: VELAGLUCERASE ALFA
     Indication: Gaucher^s disease
     Dosage: 400 INTERNATIONAL UNIT, Q2WEEKS
     Route: 042
     Dates: start: 20220614
  2. VELAGLUCERASE ALFA [Suspect]
     Active Substance: VELAGLUCERASE ALFA
     Dosage: 800 INTERNATIONAL UNIT, Q2WEEKS
     Route: 042
  3. SODIUM CHLORIDE [Concomitant]
     Active Substance: SODIUM CHLORIDE
     Dosage: UNK
     Route: 065
  4. STERILE WATER FOR INJECTION [Concomitant]
     Active Substance: WATER
     Dosage: UNK
     Route: 065
  5. SIROLIMUS [Concomitant]
     Active Substance: SIROLIMUS
     Dosage: UNK
  6. SODIUM CHLORIDE [Concomitant]
     Active Substance: SODIUM CHLORIDE
     Dosage: UNK
     Route: 065
  7. EPINEPHRINE [Concomitant]
     Active Substance: EPINEPHRINE
     Dosage: UNK
     Route: 065
  8. HEPARIN [Concomitant]
     Active Substance: HEPARIN SODIUM
     Dosage: UNK
     Route: 065
  9. Lmx [Concomitant]
     Dosage: UNK
  10. BACLOFEN [Concomitant]
     Active Substance: BACLOFEN
     Dosage: UNK
  11. NEXIUM [Concomitant]
     Active Substance: ESOMEPRAZOLE MAGNESIUM
     Dosage: UNK
  12. DIPHENHYDRAMINE [Concomitant]
     Active Substance: DIPHENHYDRAMINE
     Dosage: UNK
     Route: 065
  13. AZITHROMYCIN [Concomitant]
     Active Substance: AZITHROMYCIN
     Dosage: UNK
  14. TRIAMCINOLONE ACETONIDE [Concomitant]
     Active Substance: TRIAMCINOLONE ACETONIDE
     Dosage: UNK
  15. PREDNISOLONE [Concomitant]
     Active Substance: PREDNISOLONE
     Dosage: UNK
  16. FAMOTIDINE [Concomitant]
     Active Substance: FAMOTIDINE
     Dosage: UNK
     Route: 065
  17. AMBROXOL [Concomitant]
     Active Substance: AMBROXOL
     Dosage: UNK

REACTIONS (11)
  - Pneumonia aspiration [Unknown]
  - Rhinovirus infection [Unknown]
  - Respiratory syncytial virus infection [Unknown]
  - Viral infection [Unknown]
  - Pneumonia [Unknown]
  - Depressed mood [Unknown]
  - Cough [Unknown]
  - Device breakage [Unknown]
  - Complication associated with device [Unknown]
  - Breath holding [Unknown]
  - Vomiting [Unknown]
